FAERS Safety Report 8310083-4 (Version None)
Quarter: 2012Q2

REPORT INFORMATION
  Report Type: 
  Country: None (occurrence: None)
  Receive Date: 20120425
  Receipt Date: 20120418
  Transmission Date: 20120825
  Serious: Yes (Other)
  Sender: FDA-Public Use
  Company Number: GB-SANOFI-AVENTIS-2011SA058088

PATIENT
  Age: 35 Year
  Sex: Female

DRUGS (2)
  1. ZOLPIDEM [Suspect]
     Indication: INSOMNIA
     Route: 048
     Dates: start: 20101220, end: 20101220
  2. NAPROXEN SODIUM [Concomitant]
     Route: 065
     Dates: start: 20101218, end: 20101218

REACTIONS (1)
  - SLEEP PARALYSIS [None]
